FAERS Safety Report 5204420-7 (Version None)
Quarter: 2006Q4

REPORT INFORMATION
  Report Type: 
  Country: None (occurrence: None)
  Receive Date: 20061026
  Receipt Date: 20060725
  Transmission Date: 20070319
  Serious: Yes (Hospitalization)
  Sender: FDA-Public Use
  Company Number: 2006071503

PATIENT

DRUGS (14)
  1. LYRICA [Suspect]
     Indication: CERVICAL SPINAL STENOSIS
     Dosage: 150 MG (75 MG, 2 IN 1 D)
     Dates: start: 20060505, end: 20060521
  2. LYRICA [Suspect]
     Indication: LUMBAR SPINAL STENOSIS
     Dosage: 150 MG (75 MG, 2 IN 1 D)
     Dates: start: 20060505, end: 20060521
  3. LYRICA [Suspect]
     Indication: PAIN
     Dosage: 150 MG (75 MG, 2 IN 1 D)
     Dates: start: 20060505, end: 20060521
  4. LYRICA [Suspect]
     Indication: SACROILIITIS
     Dosage: 150 MG (75 MG, 2 IN 1 D)
     Dates: start: 20060505, end: 20060521
  5. GLIPIZIDE [Concomitant]
  6. METFORMIN HCL [Concomitant]
  7. LANTUS [Concomitant]
  8. FLUOXETINE [Concomitant]
  9. LISINOPRIL [Concomitant]
  10. METOPROLOL TARTRATE [Concomitant]
  11. LODINE [Concomitant]
  12. LEVOTHYROXINE SODIUM [Concomitant]
  13. PRAVACHOL [Concomitant]
  14. TRICOR [Concomitant]

REACTIONS (1)
  - RENAL FAILURE ACUTE [None]
